FAERS Safety Report 4807638-8 (Version None)
Quarter: 2005Q4

REPORT INFORMATION
  Report Type: 
  Country: None (occurrence: None)
  Receive Date: 20051020
  Receipt Date: 20051007
  Transmission Date: 20060501
  Serious: Yes (Other)
  Sender: FDA-Public Use
  Company Number: 2005131110

PATIENT
  Sex: Female
  Weight: 77.1115 kg

DRUGS (13)
  1. CELEBREX [Suspect]
     Indication: OSTEOARTHRITIS
     Dosage: 200 MG (200 MG, 1 IN 1 D)
  2. BEXTRA [Suspect]
     Indication: OSTEOARTHRITIS
     Dosage: (10 MG)
  3. LIPITOR [Suspect]
     Indication: ILL-DEFINED DISORDER
  4. DURG, UNSPECIFIED (DRUG, UNSPECIFIED) [Suspect]
     Indication: DIAGNOSTIC PROCEDURE
  5. SYNTHROID [Concomitant]
  6. ZETIA [Concomitant]
  7. COREG [Concomitant]
  8. FUROSEMIDE [Concomitant]
  9. POTASSIUM CHLORIDE [Concomitant]
  10. LANOXIN [Concomitant]
  11. SPIRONOLACTONE [Concomitant]
  12. ACCUPRIL [Concomitant]
  13. CRESTOR [Concomitant]

REACTIONS (20)
  - ASTHENIA [None]
  - BLOOD THYROID STIMULATING HORMONE ABNORMAL [None]
  - BRAIN NATRIURETIC PEPTIDE INCREASED [None]
  - BRONCHITIS [None]
  - BURNING SENSATION [None]
  - CARDIAC FAILURE CONGESTIVE [None]
  - CONGESTIVE CARDIOMYOPATHY [None]
  - DRUG INEFFECTIVE [None]
  - FATIGUE [None]
  - GALLOP RHYTHM PRESENT [None]
  - HEADACHE [None]
  - HYPERTRIGLYCERIDAEMIA [None]
  - INSOMNIA [None]
  - JOINT STIFFNESS [None]
  - MUSCULOSKELETAL STIFFNESS [None]
  - NEUROPATHY [None]
  - OBESITY [None]
  - PAIN [None]
  - PULMONARY OEDEMA [None]
  - THYROXINE DECREASED [None]
